FAERS Safety Report 4997424-0 (Version None)
Quarter: 2006Q2

REPORT INFORMATION
  Report Type: 
  Country: None (occurrence: None)
  Receive Date: 20060509
  Receipt Date: 20060103
  Transmission Date: 20061013
  Serious: Yes (Death, Hospitalization)
  Sender: FDA-Public Use
  Company Number: US-MERCK-0601USA00453

PATIENT
  Age: 78 Year
  Sex: Male

DRUGS (14)
  1. VIOXX [Suspect]
     Indication: ARTHRALGIA
     Route: 048
     Dates: start: 20000215, end: 20030202
  2. CENTRUM SILVER [Concomitant]
     Route: 065
  3. NORVASC [Concomitant]
     Route: 048
     Dates: start: 19970101
  4. CARBAMAZEPINE [Concomitant]
     Route: 065
  5. LIPITOR [Concomitant]
     Route: 065
     Dates: start: 19970101
  6. LASIX [Concomitant]
     Route: 065
     Dates: start: 19970101
  7. ASPIRIN [Concomitant]
     Route: 065
  8. VITAMIN E [Concomitant]
     Route: 065
  9. [COMPOSITION UNSPECIFIED] [Concomitant]
     Route: 065
  10. ADVIL [Concomitant]
     Route: 065
  11. SEROQUEL [Concomitant]
     Route: 065
  12. ULTRAM [Concomitant]
     Route: 065
  13. BIAXIN [Concomitant]
     Route: 065
  14. LEXAPRO [Concomitant]
     Route: 065

REACTIONS (9)
  - AORTIC ANEURYSM RUPTURE [None]
  - BLOOD PRESSURE FLUCTUATION [None]
  - BUNDLE BRANCH BLOCK RIGHT [None]
  - CARDIAC ARREST [None]
  - CATARACT [None]
  - ELECTROCARDIOGRAM T WAVE INVERSION [None]
  - HYPOVOLAEMIA [None]
  - SHOCK [None]
  - TACHYCARDIA [None]
